FAERS Safety Report 6141952-1 (Version None)
Quarter: 2009Q2

REPORT INFORMATION
  Report Type: 
  Country: None (occurrence: None)
  Receive Date: 20090402
  Receipt Date: 20090323
  Transmission Date: 20091009
  Serious: Yes (Death, Other)
  Sender: FDA-Public Use
  Company Number: JP-WYE-H08163709

PATIENT
  Sex: Male
  Weight: 65 kg

DRUGS (8)
  1. AMIODARONE HCL [Suspect]
     Indication: VENTRICULAR FIBRILLATION
     Route: 048
     Dates: start: 20080814, end: 20080906
  2. AMIODARONE HCL [Suspect]
     Indication: CARDIO-RESPIRATORY ARREST
  3. ATROPINE [Concomitant]
     Route: 041
     Dates: start: 20080812, end: 20080812
  4. DOPAMINE HYDROCHLORIDE [Concomitant]
     Indication: VENTRICULAR FIBRILLATION
     Dosage: 198MG TO 306 MG (FREQUENCY UNSPECIFIED)
     Route: 041
     Dates: start: 20080812, end: 20080906
  5. DOBUTAMINE HYDROCHLORIDE [Concomitant]
     Indication: VENTRICULAR FIBRILLATION
     Dosage: 204MG TO 411MG (FREQUENCY UNSPECIFIED)
     Route: 041
     Dates: start: 20080812, end: 20080906
  6. AMIODARONE HCL [Suspect]
     Route: 040
     Dates: start: 20080812, end: 20080812
  7. AMIODARONE HCL [Suspect]
     Dosage: UNSPECIFIED
     Route: 040
     Dates: start: 20080815
  8. EPINEPHRINE [Concomitant]
     Indication: VENTRICULAR FIBRILLATION
     Route: 041
     Dates: start: 20080812, end: 20080812

REACTIONS (3)
  - CARDIAC FAILURE [None]
  - DRUG INEFFECTIVE [None]
  - MULTI-ORGAN FAILURE [None]
